FAERS Safety Report 12113759 (Version 1)
Quarter: 2016Q1

REPORT INFORMATION
  Report Type: Spontaneous
  Country: US (occurrence: US)
  Receive Date: 20160225
  Receipt Date: 20160225
  Transmission Date: 20160526
  Serious: No
  Sender: FDA-Public Use
  Company Number: US-CELGENEUS-USA-2016023103

PATIENT
  Sex: Female

DRUGS (1)
  1. REVLIMID [Suspect]
     Active Substance: LENALIDOMIDE
     Indication: PLASMA CELL MYELOMA
     Dosage: 25 MILLIGRAM
     Route: 048
     Dates: start: 20160202, end: 20160209

REACTIONS (5)
  - Rash [Unknown]
  - Pruritus [Unknown]
  - Swelling [Unknown]
  - Micturition frequency decreased [Unknown]
  - Skin exfoliation [Unknown]

NARRATIVE: CASE EVENT DATE: 2016
